FAERS Safety Report 4811352-2 (Version None)
Quarter: 2005Q4

REPORT INFORMATION
  Report Type: 
  Country: None (occurrence: None)
  Receive Date: 20051026
  Receipt Date: 20051026
  Transmission Date: 20060501
  Serious: Yes (Life-Threatening)
  Sender: FDA-Public Use
  Company Number: None

PATIENT
  Age: 49 Year
  Sex: Female
  Weight: 113.3993 kg

DRUGS (1)
  1. VISIPAQUE [Suspect]
     Indication: COMPUTERISED TOMOGRAM
     Dosage: ONCE INTRA-ARTE
     Route: 013
     Dates: start: 20050719, end: 20050719

REACTIONS (10)
  - DRUG ADMINISTRATION ERROR [None]
  - EXTRAVASATION [None]
  - FEELING HOT [None]
  - INJECTION SITE DISCOLOURATION [None]
  - MELAENA [None]
  - MENTAL DISORDER [None]
  - PROCEDURAL COMPLICATION [None]
  - REFUSAL OF TREATMENT BY PATIENT [None]
  - SCAR [None]
  - UNEVALUABLE EVENT [None]
